FAERS Safety Report 14371168 (Version 1)
Quarter: 2018Q1

REPORT INFORMATION
  Report Type: Spontaneous
  Country: US (occurrence: US)
  Receive Date: 20180110
  Receipt Date: 20180110
  Transmission Date: 20180509
  Serious: No
  Sender: FDA-Public Use
  Company Number: US-PFIZER INC-2018009667

PATIENT
  Age: 37 Year
  Sex: Male

DRUGS (2)
  1. PEGVISOMANT [Suspect]
     Active Substance: PEGVISOMANT
     Dosage: 20 MG, DAILY
  2. OCTREOTIDE. [Suspect]
     Active Substance: OCTREOTIDE
     Dosage: 20 MG, DAILY

REACTIONS (1)
  - Drug ineffective [Unknown]
